FAERS Safety Report 5376187-3 (Version None)
Quarter: 2007Q2

REPORT INFORMATION
  Report Type: 
  Country: None (occurrence: None)
  Receive Date: 20070628
  Receipt Date: 20070601
  Transmission Date: 20071010
  Serious: Yes (Other)
  Sender: FDA-Public Use
  Company Number: GB-GDP-0714992

PATIENT
  Age: 20 Year
  Sex: Male

DRUGS (2)
  1. METVIXIA [Suspect]
     Indication: ACNE
     Dosage: 4 G
     Route: 064
     Dates: start: 20070312, end: 20070312
  2. METVIXIA [Suspect]
     Indication: ACNE
     Dosage: 4 G
     Route: 064
     Dates: start: 20070319, end: 20070319

REACTIONS (5)
  - OFF LABEL USE [None]
  - PAIN OF SKIN [None]
  - RASH PUSTULAR [None]
  - SCAB [None]
  - SKIN SWELLING [None]
